FAERS Safety Report 9131072 (Version 1)
Quarter: 2013Q1

REPORT INFORMATION
  Report Type: Spontaneous
  Country: US (occurrence: US)
  Receive Date: 20130301
  Receipt Date: 20130301
  Transmission Date: 20140127
  Serious: Yes (Hospitalization)
  Sender: FDA-Public Use
  Company Number: US-JNJFOC-20130211804

PATIENT
  Sex: Female

DRUGS (3)
  1. INVEGA SUSTENNA [Suspect]
     Indication: SCHIZOPHRENIA
     Route: 030
     Dates: start: 201206, end: 201212
  2. PROPRANOLOL [Concomitant]
     Route: 048
  3. COGENTIN [Concomitant]
     Route: 048

REACTIONS (1)
  - Schizophrenia [Unknown]
